FAERS Safety Report 6524083-8 (Version None)
Quarter: 2009Q4

REPORT INFORMATION
  Report Type: 
  Country: None (occurrence: None)
  Receive Date: 20091231
  Receipt Date: 20091221
  Transmission Date: 20100525
  Serious: Yes (Hospitalization)
  Sender: FDA-Public Use
  Company Number: PHHY2009DE48541

PATIENT
  Sex: Male

DRUGS (4)
  1. LEPONEX [Suspect]
     Indication: SCHIZOPHRENIA
     Dosage: 0 TO 500 MG/DAY
     Route: 048
     Dates: start: 20080801, end: 20080830
  2. LEPONEX [Suspect]
     Dosage: 500 MG/DAY
     Route: 048
     Dates: start: 20080830, end: 20090320
  3. LEPONEX [Suspect]
     Dosage: 400 MG/DAY
     Route: 048
     Dates: start: 20090321
  4. METOPROLOL TARTRATE [Concomitant]
     Dosage: 47.5 MG/DAY
     Route: 048
     Dates: start: 20090406

REACTIONS (3)
  - PARAESTHESIA [None]
  - PARAESTHESIA ORAL [None]
  - TRANSIENT ISCHAEMIC ATTACK [None]
